FAERS Safety Report 12206654 (Version 2)
Quarter: 2016Q2

REPORT INFORMATION
  Report Type: Spontaneous
  Country: US (occurrence: US)
  Receive Date: 20160324
  Receipt Date: 20160418
  Transmission Date: 20160815
  Serious: Yes (Other)
  Sender: FDA-Public Use
  Company Number: US-TEVA-644397USA

PATIENT
  Age: 68 Year
  Sex: Female

DRUGS (12)
  1. LISINOPRIL. [Concomitant]
     Active Substance: LISINOPRIL
  2. ANASTROZOLE. [Suspect]
     Active Substance: ANASTROZOLE
     Route: 065
  3. FEMARA [Suspect]
     Active Substance: LETROZOLE
  4. XGEVA [Suspect]
     Active Substance: DENOSUMAB
     Route: 065
     Dates: start: 20150626
  5. AMBIEN [Concomitant]
     Active Substance: ZOLPIDEM TARTRATE
  6. IBRANCE [Suspect]
     Active Substance: PALBOCICLIB
     Indication: BREAST CANCER METASTATIC
     Route: 048
     Dates: start: 20150612
  7. ASPIR-81 [Concomitant]
     Active Substance: ASPIRIN
  8. CALCIUM D [Concomitant]
     Active Substance: CALCIUM\VITAMIN D
  9. GEMFIBROZIL. [Concomitant]
     Active Substance: GEMFIBROZIL
  10. METFORMIN [Concomitant]
     Active Substance: METFORMIN HYDROCHLORIDE
  11. ACIDOPHILUS [Concomitant]
     Active Substance: LACTOBACILLUS ACIDOPHILUS
     Route: 048
  12. HYDROCHLOROTHIAZIDE. [Concomitant]
     Active Substance: HYDROCHLOROTHIAZIDE

REACTIONS (4)
  - Oral surgery [Unknown]
  - Neutropenia [Unknown]
  - Osteonecrosis [Unknown]
  - Osteomyelitis [Unknown]

NARRATIVE: CASE EVENT DATE: 20150626
